FAERS Safety Report 23718155 (Version 1)
Quarter: 2024Q2

REPORT INFORMATION
  Report Type: Spontaneous
  Country: US (occurrence: None)
  Receive Date: 20240406
  Receipt Date: 20240406
  Transmission Date: 20240716
  Serious: Yes (Other)
  Sender: FDA-Public Use
  Company Number: None

PATIENT
  Age: 77 Year
  Sex: Male
  Weight: 85.5 kg

DRUGS (9)
  1. CHLORAPREP ONE-STEP [Suspect]
     Active Substance: CHLORHEXIDINE GLUCONATE\ISOPROPYL ALCOHOL
     Indication: Shoulder arthroplasty
     Dosage: 1 OUNCE (S) ONCE TOPICAL
     Route: 061
     Dates: start: 20240401, end: 20240401
  2. TAMSULOSIN [Concomitant]
     Active Substance: TAMSULOSIN
  3. CELEBREX [Concomitant]
  4. PREDNISONE [Concomitant]
     Active Substance: PREDNISONE
  5. CORTISONE [Concomitant]
     Active Substance: CORTISONE
  6. BENADRYL [Concomitant]
     Active Substance: DIPHENHYDRAMINE HYDROCHLORIDE
  7. PHENERGAN [Concomitant]
     Active Substance: PROMETHAZINE HYDROCHLORIDE
  8. accetminophen [Concomitant]
  9. DURAPREP [Suspect]
     Active Substance: IODINE POVACRYLEX\ISOPROPYL ALCOHOL

REACTIONS (2)
  - Rash [None]
  - Urticaria [None]

NARRATIVE: CASE EVENT DATE: 20240401
